FAERS Safety Report 7138230-0 (Version None)
Quarter: 2010Q4

REPORT INFORMATION
  Report Type: 
  Country: None (occurrence: None)
  Receive Date: 20101103
  Receipt Date: 20100426
  Transmission Date: 20110411
  Serious: Yes (Hospitalization)
  Sender: FDA-Public Use
  Company Number: US-WYE-H14842810

PATIENT
  Age: 30 Year
  Sex: Female

DRUGS (4)
  1. EFFEXOR XR [Suspect]
     Indication: DEPRESSION
     Dosage: 150 MG 1X PER 1 DAY, ORAL
     Route: 048
     Dates: start: 20100401
  2. NUVARING [Concomitant]
  3. VITAMINS WITH MINERALS (VITAMINS WITH MINERALS) [Concomitant]
  4. VICODIN [Concomitant]

REACTIONS (2)
  - LIVER FUNCTION TEST ABNORMAL [None]
  - RHABDOMYOLYSIS [None]
